FAERS Safety Report 11492952 (Version 1)
Quarter: 2015Q3

REPORT INFORMATION
  Report Type: Spontaneous
  Country: US (occurrence: US)
  Receive Date: 20150911
  Receipt Date: 20150911
  Transmission Date: 20151125
  Serious: Yes (Other)
  Sender: FDA-Public Use
  Company Number: US-TEVA-592698ACC

PATIENT
  Age: 29 Year
  Sex: Female
  Weight: 62.65 kg

DRUGS (1)
  1. PARAGARD T 380A [Suspect]
     Active Substance: COPPER
     Indication: CONTRACEPTION
     Route: 015
     Dates: start: 20150706, end: 20150810

REACTIONS (2)
  - Vaginal haemorrhage [Unknown]
  - Device dislocation [Unknown]

NARRATIVE: CASE EVENT DATE: 20150713
